FAERS Safety Report 23881197 (Version 1)
Quarter: 2024Q2

REPORT INFORMATION
  Report Type: Report from Study
  Country: US (occurrence: US)
  Receive Date: 20240521
  Receipt Date: 20240521
  Transmission Date: 20240716
  Serious: Yes (Other)
  Sender: FDA-Public Use
  Company Number: US-SUNPHARMA-2024R1-446788AA

PATIENT
  Age: 66 Year
  Sex: Male

DRUGS (5)
  1. OCTREOTIDE [Suspect]
     Active Substance: OCTREOTIDE\OCTREOTIDE ACETATE
     Indication: Chordoma
     Dosage: UNK
     Route: 065
     Dates: start: 2002
  2. TEMOZOLOMIDE [Suspect]
     Active Substance: TEMOZOLOMIDE
     Indication: Chordoma
     Dosage: UNK
     Route: 065
     Dates: start: 2022
  3. CISPLATIN [Concomitant]
     Active Substance: CISPLATIN
     Indication: Chordoma
     Dosage: UNK
     Route: 065
     Dates: start: 2002
  4. ETOPOSIDE [Concomitant]
     Active Substance: ETOPOSIDE
     Indication: Chordoma
     Dosage: UNK
     Route: 065
     Dates: start: 2002
  5. PACLITAXEL [Concomitant]
     Active Substance: PACLITAXEL
     Indication: Chordoma
     Dosage: UNK
     Route: 065

REACTIONS (1)
  - Disease progression [Unknown]
